FAERS Safety Report 6305864-2 (Version None)
Quarter: 2009Q3

REPORT INFORMATION
  Report Type: 
  Country: None (occurrence: None)
  Receive Date: 20090803
  Receipt Date: 20090420
  Transmission Date: 20100115
  Serious: Yes (Hospitalization, Other)
  Sender: FDA-Public Use
  Company Number: 190666USA

PATIENT
  Age: 9 Year
  Weight: 34 kg

DRUGS (6)
  1. IFOSFAMIDE [Suspect]
     Indication: ACUTE LYMPHOCYTIC LEUKAEMIA
     Dosage: 3GM/60M1 EVERY TWENTY HOURS (2180 MG),PARENTERAL
     Route: 051
     Dates: start: 20090403, end: 20090407
  2. IFOSFAMIDE [Suspect]
  3. MESNA [Concomitant]
  4. OMEPRAZOLE [Concomitant]
  5. ONDANSETRON [Concomitant]
  6. SIMVASTATIN [Concomitant]

REACTIONS (4)
  - ABNORMAL BEHAVIOUR [None]
  - DEPRESSED LEVEL OF CONSCIOUSNESS [None]
  - GAIT DISTURBANCE [None]
  - NEUROTOXICITY [None]
